FAERS Safety Report 18490744 (Version 1)
Quarter: 2020Q4

REPORT INFORMATION
  Report Type: Spontaneous
  Country: US (occurrence: US)
  Receive Date: 20201111
  Receipt Date: 20201111
  Transmission Date: 20210114
  Serious: Yes (Hospitalization)
  Sender: FDA-Public Use
  Company Number: None

PATIENT
  Sex: Male

DRUGS (23)
  1. ATORVASTATIN [Concomitant]
     Active Substance: ATORVASTATIN
  2. FUROSEMIDE. [Concomitant]
     Active Substance: FUROSEMIDE
  3. LOSARTAN POT [Concomitant]
     Active Substance: LOSARTAN POTASSIUM
  4. METOPROLOL. [Concomitant]
     Active Substance: METOPROLOL
  5. AMBRISENTAN 10MG [Suspect]
     Active Substance: AMBRISENTAN
     Indication: PULMONARY ARTERIAL HYPERTENSION
     Route: 048
     Dates: start: 20200130
  6. ALLOPURINOL. [Concomitant]
     Active Substance: ALLOPURINOL
  7. DAILY-VITE [Concomitant]
  8. LEVITRA [Concomitant]
     Active Substance: VARDENAFIL HYDROCHLORIDE
  9. METFORMIN [Concomitant]
     Active Substance: METFORMIN HYDROCHLORIDE
  10. OMEPRAZOLE. [Concomitant]
     Active Substance: OMEPRAZOLE
  11. AMOXICILLIN. [Concomitant]
     Active Substance: AMOXICILLIN
  12. ASPIRIN. [Concomitant]
     Active Substance: ASPIRIN
  13. VIT D [Concomitant]
     Active Substance: VITAMIN D NOS
  14. EPLERENONE. [Concomitant]
     Active Substance: EPLERENONE
  15. IMIQUIMOD CRE [Concomitant]
  16. METOPROL SUC [Concomitant]
  17. FLUTICASONE SPR [Concomitant]
  18. GLIMEPIRIDE. [Concomitant]
     Active Substance: GLIMEPIRIDE
  19. GABAPENTIN 300MG [Suspect]
     Active Substance: GABAPENTIN
     Indication: PULMONARY ARTERIAL HYPERTENSION
     Route: 048
     Dates: start: 20180601
  20. CETIRIZINE [Concomitant]
     Active Substance: CETIRIZINE HYDROCHLORIDE
  21. SILDENAFIL. [Concomitant]
     Active Substance: SILDENAFIL
  22. TADALAFIL. [Concomitant]
     Active Substance: TADALAFIL
  23. TRAZODONE [Concomitant]
     Active Substance: TRAZODONE HYDROCHLORIDE

REACTIONS (1)
  - Loss of consciousness [None]
